FAERS Safety Report 7018741-9 (Version None)
Quarter: 2010Q3

REPORT INFORMATION
  Report Type: 
  Country: None (occurrence: None)
  Receive Date: 20100928
  Receipt Date: 20100924
  Transmission Date: 20110219
  Serious: Yes (Other)
  Sender: FDA-Public Use
  Company Number: US-MYLANLABS-2010S1017053

PATIENT
  Age: 58 Year
  Sex: Female

DRUGS (3)
  1. IPRATROPIUM BROMIDE [Suspect]
     Dates: start: 20100520, end: 20100520
  2. VITAMINS [Concomitant]
  3. FLURBIPROFEN [Concomitant]

REACTIONS (1)
  - CONVULSION [None]
